FAERS Safety Report 9450172 (Version 2)
Quarter: 2013Q3

REPORT INFORMATION
  Report Type: Spontaneous
  Country: IT (occurrence: IT)
  Receive Date: 20130809
  Receipt Date: 20130923
  Transmission Date: 20140515
  Serious: Yes (Hospitalization)
  Sender: FDA-Public Use
  Company Number: IT-BAYER-2013-093943

PATIENT
  Age: 65 Year
  Sex: Male

DRUGS (4)
  1. CARDIOASPIRIN [Suspect]
     Indication: CEREBRAL ISCHAEMIA
     Dosage: 100 MG, DAILY DOSE
     Route: 048
     Dates: start: 20020101, end: 20130727
  2. SIMVASTATIN [Concomitant]
     Indication: DYSLIPIDAEMIA
     Dosage: 10 MG, DAILY DOSE
     Route: 048
  3. ZYLORIC [Concomitant]
     Indication: NEPHROLITHIASIS
     Dosage: 150 MG, DAILY DOSE
     Route: 048
  4. FOLINA [Concomitant]
     Indication: HYPERHOMOCYSTEINAEMIA
     Dosage: 5 MG, DAILY DOSE
     Route: 048

REACTIONS (3)
  - Facial bones fracture [Not Recovered/Not Resolved]
  - Wound [Not Recovered/Not Resolved]
  - Cerebral haemorrhage [Not Recovered/Not Resolved]
